FAERS Safety Report 14832862 (Version 47)
Quarter: 2020Q3

REPORT INFORMATION
  Report Type: Report from Study
  Country: CA (occurrence: CA)
  Receive Date: 20180501
  Receipt Date: 20200713
  Transmission Date: 20201102
  Serious: Yes (Hospitalization, Other)
  Sender: FDA-Public Use
  Company Number: PHHY2017CA196020

PATIENT
  Age: 48 Year
  Sex: Female

DRUGS (30)
  1. ILARIS [Suspect]
     Active Substance: CANAKINUMAB
     Indication: FAMILIAL COLD AUTOINFLAMMATORY SYNDROME
     Dosage: 150 MG, EVERY 8 WEEKS
     Route: 058
     Dates: start: 20170906
  2. ILARIS [Suspect]
     Active Substance: CANAKINUMAB
     Dosage: 300 MG, QMO (4 WEEKS)
     Route: 058
     Dates: start: 20181031
  3. ILARIS [Suspect]
     Active Substance: CANAKINUMAB
     Dosage: 300 MG, Q2W
     Route: 058
     Dates: start: 20190527
  4. ILARIS [Suspect]
     Active Substance: CANAKINUMAB
     Dosage: 300 MG, Q2W
     Route: 058
     Dates: start: 20191111
  5. ILARIS [Suspect]
     Active Substance: CANAKINUMAB
     Dosage: 300 MG, Q2W
     Route: 058
     Dates: start: 20191125
  6. ONDANSETRON [Suspect]
     Active Substance: ONDANSETRON
     Dosage: UNK, QD (ONE TO TWO PILLS DAILY)
     Route: 048
  7. ACTEMRA [Concomitant]
     Active Substance: TOCILIZUMAB
     Indication: INFLAMMATION
     Dosage: UNK
     Route: 065
     Dates: start: 20200213
  8. ILARIS [Suspect]
     Active Substance: CANAKINUMAB
     Dosage: 300 MG, Q2W
     Route: 058
     Dates: start: 20190805
  9. ILARIS [Suspect]
     Active Substance: CANAKINUMAB
     Dosage: 300 MG, Q4WEEKS
     Route: 058
     Dates: start: 20181002
  10. ILARIS [Suspect]
     Active Substance: CANAKINUMAB
     Dosage: 300 MG, Q2W
     Route: 058
     Dates: start: 20190218
  11. ILARIS [Suspect]
     Active Substance: CANAKINUMAB
     Dosage: 300 MG, Q2W
     Route: 058
     Dates: start: 20200511
  12. CORTEL [Suspect]
     Active Substance: TELMISARTAN
     Indication: PRODUCT USED FOR UNKNOWN INDICATION
     Dosage: 30 MG, UNK
     Route: 065
  13. ILARIS [Suspect]
     Active Substance: CANAKINUMAB
     Dosage: 300 MG,  EVERY 8 WEEKS
     Route: 058
     Dates: start: 20180221
  14. ILARIS [Suspect]
     Active Substance: CANAKINUMAB
     Dosage: 300 MG, Q2W
     Route: 058
     Dates: start: 20190304
  15. ILARIS [Suspect]
     Active Substance: CANAKINUMAB
     Dosage: 300 MG, Q2W
     Route: 058
     Dates: start: 20190625
  16. ILARIS [Suspect]
     Active Substance: CANAKINUMAB
     Dosage: 300 MG, Q2W
     Route: 058
     Dates: start: 20191015
  17. ILARIS [Suspect]
     Active Substance: CANAKINUMAB
     Dosage: 300 MG, Q2W
     Route: 058
  18. ONDANSETRON [Suspect]
     Active Substance: ONDANSETRON
     Indication: NAUSEA
     Dosage: UNK, QD (HALF A PILL TO ONE PILL DAILY)
     Route: 048
  19. ILARIS [Suspect]
     Active Substance: CANAKINUMAB
     Dosage: 300 MG, Q2W
     Route: 058
     Dates: start: 20181224
  20. ILARIS [Suspect]
     Active Substance: CANAKINUMAB
     Dosage: 300 MG, Q2W
     Route: 058
     Dates: start: 20190722
  21. COLCHICINE. [Suspect]
     Active Substance: COLCHICINE
     Indication: PRODUCT USED FOR UNKNOWN INDICATION
     Dosage: UNK
     Route: 065
  22. ILARIS [Suspect]
     Active Substance: CANAKINUMAB
     Dosage: 150 MG, EVERY 8 WEEKS
     Route: 058
     Dates: start: 20171227
  23. ILARIS [Suspect]
     Active Substance: CANAKINUMAB
     Dosage: 300 MG, Q2W
     Route: 058
     Dates: start: 20190402
  24. ILARIS [Suspect]
     Active Substance: CANAKINUMAB
     Dosage: 300 MG, Q2W
     Route: 058
     Dates: start: 20190903
  25. ILARIS [Suspect]
     Active Substance: CANAKINUMAB
     Dosage: 300 MG, Q2W
     Route: 058
     Dates: start: 20200622
  26. CARDIZEM CD [Concomitant]
     Active Substance: DILTIAZEM HYDROCHLORIDE
     Indication: PRODUCT USED FOR UNKNOWN INDICATION
     Dosage: 240 MG, QD
     Route: 065
  27. ILARIS [Suspect]
     Active Substance: CANAKINUMAB
     Dosage: 300 MG,  EVERY 8 WEEKS
     Route: 058
     Dates: start: 20180418
  28. ILARIS [Suspect]
     Active Substance: CANAKINUMAB
     Dosage: 300 MG, Q4WEEKS
     Route: 058
     Dates: start: 20180613
  29. ILARIS [Suspect]
     Active Substance: CANAKINUMAB
     Dosage: 300 MG, Q2W
     Route: 058
     Dates: start: 20200212
  30. ILARIS [Suspect]
     Active Substance: CANAKINUMAB
     Dosage: 300 MG, Q2W
     Route: 058
     Dates: start: 20200610

REACTIONS (48)
  - Pneumonitis [Recovering/Resolving]
  - Adrenal disorder [Unknown]
  - Chills [Unknown]
  - Pain in extremity [Recovered/Resolved]
  - Thermal burn [Unknown]
  - Coordination abnormal [Unknown]
  - Erythema [Not Recovered/Not Resolved]
  - Dysphagia [Unknown]
  - Diarrhoea [Recovering/Resolving]
  - Gait disturbance [Unknown]
  - Nausea [Unknown]
  - Ear infection [Unknown]
  - Respiration abnormal [Recovering/Resolving]
  - Malaise [Unknown]
  - Cough [Unknown]
  - Vision blurred [Unknown]
  - Oropharyngeal pain [Unknown]
  - Colitis [Unknown]
  - Nausea [Recovered/Resolved]
  - Abdominal pain [Unknown]
  - Headache [Recovering/Resolving]
  - Dizziness [Recovered/Resolved]
  - Nasopharyngitis [Unknown]
  - Blood pressure systolic increased [Unknown]
  - Vomiting [Unknown]
  - Fatigue [Not Recovered/Not Resolved]
  - White blood cell count decreased [Unknown]
  - Nervousness [Unknown]
  - Chest pain [Unknown]
  - Pain [Not Recovered/Not Resolved]
  - Hot flush [Unknown]
  - Feeling cold [Unknown]
  - Rhinorrhoea [Unknown]
  - Arthralgia [Unknown]
  - Hepatic enzyme increased [Unknown]
  - Fear of injection [Unknown]
  - Body temperature increased [Unknown]
  - Rheumatoid arthritis [Unknown]
  - Insomnia [Unknown]
  - Dizziness [Recovering/Resolving]
  - Familial cold autoinflammatory syndrome [Recovering/Resolving]
  - Hyperhidrosis [Unknown]
  - Visual impairment [Unknown]
  - Weight decreased [Unknown]
  - Anxiety [Unknown]
  - Hypersomnia [Unknown]
  - Abdominal pain upper [Unknown]
  - Sensitive skin [Not Recovered/Not Resolved]

NARRATIVE: CASE EVENT DATE: 2017
